FAERS Safety Report 7573280-1 (Version None)
Quarter: 2011Q2

REPORT INFORMATION
  Report Type: 
  Country: None (occurrence: None)
  Receive Date: 20110627
  Receipt Date: 20110613
  Transmission Date: 20111010
  Serious: Yes (Hospitalization)
  Sender: FDA-Public Use
  Company Number: US-MYLANLABS-2011S1012582

PATIENT
  Age: 34 Year
  Sex: Female

DRUGS (1)
  1. FENTANYL [Suspect]
     Route: 065

REACTIONS (2)
  - HYPERAESTHESIA [None]
  - OVERDOSE [None]
